FAERS Safety Report 6112405-1 (Version None)
Quarter: 2009Q1

REPORT INFORMATION
  Report Type: 
  Country: None (occurrence: None)
  Receive Date: 20090311
  Receipt Date: 20090311
  Transmission Date: 20090719
  Serious: Yes (Hospitalization)
  Sender: FDA-Public Use
  Company Number: None

PATIENT
  Age: 60 Year
  Sex: Male
  Weight: 95.3 kg

DRUGS (2)
  1. DIVALPROEX SODIUM [Suspect]
     Indication: POST-TRAUMATIC STRESS DISORDER
     Dosage: 750 MG EVERY DAY PO
     Route: 048
     Dates: start: 20081211, end: 20090122
  2. PHENYTOIN [Suspect]
     Indication: CONVULSION
     Dosage: 200 MG TID PO
     Route: 048
     Dates: start: 20080425

REACTIONS (6)
  - CONFUSIONAL STATE [None]
  - DIZZINESS [None]
  - EAR INJURY [None]
  - FALL [None]
  - HEAD INJURY [None]
  - TREMOR [None]
